FAERS Safety Report 13575428 (Version 2)
Quarter: 2017Q2

REPORT INFORMATION
  Report Type: Report from Study
  Country: DE (occurrence: DE)
  Receive Date: 20170524
  Receipt Date: 20170526
  Transmission Date: 20170830
  Serious: Yes (Death, Hospitalization)
  Sender: FDA-Public Use
  Company Number: DE-BEH-2017080515

PATIENT
  Age: 66 Year
  Sex: Male
  Weight: 85 kg

DRUGS (5)
  1. PRIVIGEN [Suspect]
     Active Substance: HUMAN IMMUNOGLOBULIN G
     Indication: MONOCLONAL GAMMOPATHY
     Dosage: 20 G, TOT
     Route: 042
     Dates: start: 20161208
  2. PRIVIGEN [Suspect]
     Active Substance: HUMAN IMMUNOGLOBULIN G
     Dosage: 20 G, TOT
     Route: 042
     Dates: start: 20170105
  3. PRIVIGEN [Suspect]
     Active Substance: HUMAN IMMUNOGLOBULIN G
     Indication: WALDENSTROM^S MACROGLOBULINAEMIA
     Dosage: 20 G, TOT
     Route: 042
     Dates: start: 20161123
  4. PRIVIGEN [Suspect]
     Active Substance: HUMAN IMMUNOGLOBULIN G
     Dosage: 20 G, TOT
     Route: 042
     Dates: start: 20170131
  5. FOLFIRI [Concomitant]
     Active Substance: FLUOROURACIL\IRINOTECAN\LEUCOVORIN
     Route: 065

REACTIONS (10)
  - Acute kidney injury [Unknown]
  - Urosepsis [Unknown]
  - Fistula inflammation [Unknown]
  - Atypical pneumonia [Unknown]
  - Urinary tract infection [Unknown]
  - Kidney congestion [Unknown]
  - Chills [Unknown]
  - Ureteral stent insertion [Unknown]
  - Rectal cancer metastatic [Fatal]
  - Pyrexia [Unknown]

NARRATIVE: CASE EVENT DATE: 20170324
